FAERS Safety Report 7079546-6 (Version None)
Quarter: 2010Q4

REPORT INFORMATION
  Report Type: 
  Country: None (occurrence: None)
  Receive Date: 20101102
  Receipt Date: 20101023
  Transmission Date: 20110411
  Serious: Yes (Other)
  Sender: FDA-Public Use
  Company Number: IE-ABBOTT-10P-229-0680845-00

PATIENT
  Sex: Female

DRUGS (1)
  1. HUMIRA [Suspect]
     Indication: PRODUCT USED FOR UNKNOWN INDICATION
     Dates: start: 20100501

REACTIONS (3)
  - DIPLOPIA [None]
  - HEADACHE [None]
  - VISUAL ACUITY REDUCED [None]
